FAERS Safety Report 23251876 (Version 2)
Quarter: 2023Q4

REPORT INFORMATION
  Report Type: Spontaneous
  Country: ES (occurrence: ES)
  Receive Date: 20231201
  Receipt Date: 20231207
  Transmission Date: 20240109
  Serious: Yes (Death, Life-Threatening, Hospitalization, Disabling, Other)
  Sender: FDA-Public Use
  Company Number: ES-FERRINGPH-2023FE05872

PATIENT

DRUGS (1)
  1. DINOPROSTONE [Suspect]
     Active Substance: DINOPROSTONE
     Indication: Labour induction
     Dosage: UNK
     Route: 064
     Dates: start: 20231117, end: 20231117

REACTIONS (3)
  - Neonatal asphyxia [Fatal]
  - Hypoxic ischaemic encephalopathy neonatal [Fatal]
  - Neonatal seizure [Fatal]

NARRATIVE: CASE EVENT DATE: 20231117
